FAERS Safety Report 9369562 (Version 2)
Quarter: 2013Q3

REPORT INFORMATION
  Report Type: Spontaneous
  Country: US (occurrence: US)
  Receive Date: 20130626
  Receipt Date: 20130717
  Transmission Date: 20140515
  Serious: No
  Sender: FDA-Public Use
  Company Number: US-PFIZER INC-2013188638

PATIENT
  Age: 68 Year
  Sex: Female
  Weight: 63.49 kg

DRUGS (3)
  1. CALAN SR [Suspect]
     Indication: MIGRAINE
     Dosage: UNK
     Route: 048
  2. TOPAMAX [Suspect]
     Indication: MIGRAINE
     Dosage: 50 MG, DAILY AT NIGHT
     Dates: start: 201112
  3. TOPAMAX [Suspect]
     Dosage: 25 MG, DAILY

REACTIONS (2)
  - Dizziness [Unknown]
  - Dysstasia [Unknown]
